FAERS Safety Report 10184679 (Version 1)
Quarter: 2014Q2

REPORT INFORMATION
  Report Type: Spontaneous
  Country: US (occurrence: None)
  Receive Date: 20140519
  Receipt Date: 20140519
  Transmission Date: 20141212
  Serious: Yes (Congenital Anomaly)
  Sender: FDA-Public Use
  Company Number: 2014AP002963

PATIENT
  Age: 0 Day
  Sex: Female

DRUGS (1)
  1. PAXIL [Suspect]
     Indication: ANXIETY
     Route: 064

REACTIONS (3)
  - Electrocardiogram QT prolonged [None]
  - Atrial septal defect [None]
  - Maternal drugs affecting foetus [None]
